APPROVED DRUG PRODUCT: MUCOMYST
Active Ingredient: ACETYLCYSTEINE
Strength: 10% **Federal Register determination that product was not discontinued or withdrawn for safety or effectiveness reasons**
Dosage Form/Route: SOLUTION;INHALATION, ORAL
Application: N013601 | Product #002
Applicant: APOTHECON INC DIV BRISTOL MYERS SQUIBB
Approved: Approved Prior to Jan 1, 1982 | RLD: Yes | RS: No | Type: DISCN